FAERS Safety Report 14047295 (Version 4)
Quarter: 2017Q4

REPORT INFORMATION
  Report Type: Spontaneous
  Country: US (occurrence: US)
  Receive Date: 20171005
  Receipt Date: 20171019
  Transmission Date: 20180321
  Serious: Yes (Other)
  Sender: FDA-Public Use
  Company Number: US-ALKERMES INC.-ALK-2017-004068

PATIENT
  Age: 33 Year
  Sex: Male

DRUGS (1)
  1. VIVITROL [Suspect]
     Active Substance: NALTREXONE
     Indication: DRUG USE DISORDER
     Dosage: 380 MG, QMO
     Route: 030
     Dates: start: 20170614

REACTIONS (6)
  - Anxiety [Unknown]
  - Epilepsy [Unknown]
  - Panic attack [Unknown]
  - Medical device implantation [Unknown]
  - Drug abuse [Unknown]
  - Pain [Unknown]

NARRATIVE: CASE EVENT DATE: 2017
